FAERS Safety Report 20465856 (Version 1)
Quarter: 2022Q1

REPORT INFORMATION
  Report Type: Other
  Country: US (occurrence: None)
  Receive Date: 20220212
  Receipt Date: 20220212
  Transmission Date: 20220423
  Serious: Yes (Other)
  Sender: FDA-Public Use
  Company Number: US-ROCHE-2883179

PATIENT
  Age: 55 Year
  Sex: Female

DRUGS (1)
  1. OCREVUS [Suspect]
     Active Substance: OCRELIZUMAB
     Indication: Relapsing multiple sclerosis
     Dosage: ONGOING NO?300 MG IVPB OF 2 WEEKS *2, 600 MG IVPB OF 6 MONTHS?DATE OF TREATMENT: 11/NOV/2020, 02/JUL
     Route: 042
     Dates: start: 20201028, end: 20210702

REACTIONS (2)
  - Anaphylactic shock [Unknown]
  - Myocardial infarction [Unknown]

NARRATIVE: CASE EVENT DATE: 20210701
